FAERS Safety Report 10809517 (Version 1)
Quarter: 2015Q1

REPORT INFORMATION
  Report Type: Spontaneous
  Country: US (occurrence: None)
  Receive Date: 20150212
  Receipt Date: 20150212
  Transmission Date: 20150721
  Serious: Yes (Hospitalization, Other)
  Sender: FDA-Public Use
  Company Number: 54973 AE # 1594

PATIENT
  Age: 17 Month
  Sex: Male

DRUGS (1)
  1. BABY TEETHING [Suspect]
     Active Substance: ARABICA COFFEE BEAN\ATROPA BELLADONNA\CALCIUM PHOSPHATE\CHAMOMILE
     Indication: TEETHING
     Dosage: 2-3 TABS QIDPRNTEECHING

REACTIONS (4)
  - Toxicity to various agents [None]
  - Febrile convulsion [None]
  - Facial spasm [None]
  - Dehydration [None]

NARRATIVE: CASE EVENT DATE: 20150116
